FAERS Safety Report 9009706 (Version 1)
Quarter: 2013Q1

REPORT INFORMATION
  Report Type: Spontaneous
  Country: IN (occurrence: IN)
  Receive Date: 20130110
  Receipt Date: 20130110
  Transmission Date: 20140127
  Serious: Yes (Other)
  Sender: FDA-Public Use
  Company Number: IN-PFIZER INC-IN-WYE-H08493409

PATIENT
  Age: 74 Year
  Sex: Male

DRUGS (4)
  1. PANTOPRAZOLE [Suspect]
     Indication: DYSPEPSIA
     Dosage: 40-80 MG/DAY
     Route: 048
  2. PANTOPRAZOLE [Suspect]
     Indication: REGURGITATION
  3. PANTOPRAZOLE [Suspect]
     Indication: DYSPEPSIA
  4. PANTOPRAZOLE [Suspect]
     Indication: GASTROOESOPHAGEAL REFLUX DISEASE

REACTIONS (4)
  - Gastritis atrophic [Not Recovered/Not Resolved]
  - Metaplasia [Not Recovered/Not Resolved]
  - Achlorhydria [Not Recovered/Not Resolved]
  - Vitamin B12 deficiency [Not Recovered/Not Resolved]
